FAERS Safety Report 4336662-7 (Version None)
Quarter: 2004Q2

REPORT INFORMATION
  Report Type: 
  Country: None (occurrence: None)
  Receive Date: 20040412
  Receipt Date: 20040406
  Transmission Date: 20050107
  Serious: Yes (Other)
  Sender: FDA-Public Use
  Company Number: US-GLAXOSMITHKLINE-A0505980A

PATIENT
  Age: 60 Year
  Sex: Female

DRUGS (11)
  1. ADVAIR DISKUS 100/50 [Suspect]
     Indication: ASTHMA
     Dosage: 2PUFF TWICE PER DAY
     Route: 055
  2. PREVACID [Concomitant]
  3. CELEXA [Concomitant]
  4. SINGULAIR [Concomitant]
  5. ZANTAC [Concomitant]
  6. LIPITOR [Concomitant]
  7. HYZAAR [Concomitant]
  8. DILTIAZEM [Concomitant]
  9. GLUCOVANCE [Concomitant]
  10. ALBUTEROL [Concomitant]
  11. SEROQUEL [Concomitant]

REACTIONS (6)
  - ANGINA PECTORIS [None]
  - CHEST DISCOMFORT [None]
  - COUGH [None]
  - DYSPNOEA [None]
  - FATIGUE [None]
  - OVERDOSE [None]
